FAERS Safety Report 16892808 (Version 2)
Quarter: 2019Q4

REPORT INFORMATION
  Report Type: Spontaneous
  Country: JP (occurrence: JP)
  Receive Date: 20191007
  Receipt Date: 20191016
  Transmission Date: 20200122
  Serious: Yes (Hospitalization, Other)
  Sender: FDA-Public Use
  Company Number: JP-ALLERGAN-1940624US

PATIENT
  Sex: Female

DRUGS (10)
  1. MOHRUS L [Concomitant]
     Active Substance: KETOPROFEN
  2. AMLODIPINE BESILATE [Concomitant]
     Active Substance: AMLODIPINE BESYLATE
  3. FAMOTIDINE. [Concomitant]
     Active Substance: FAMOTIDINE
  4. URSODEOXYCHOLIC ACID [Concomitant]
     Active Substance: URSODIOL
  5. PREDONINE [Concomitant]
     Active Substance: PREDNISOLONE
  6. EXCELASE [Concomitant]
     Active Substance: PANCRELIPASE
  7. ALFAROL [Concomitant]
     Active Substance: ALFACALCIDOL
  8. LOXONIN [Concomitant]
     Active Substance: LOXOPROFEN SODIUM
  9. RISEDRONATE SODIUM - BP [Suspect]
     Active Substance: RISEDRONATE SODIUM
     Indication: OSTEOPOROSIS
     Dosage: 17.5 MG, ONCE PER WEEK
     Route: 048
     Dates: start: 20190115
  10. NESINA [Concomitant]
     Active Substance: ALOGLIPTIN BENZOATE

REACTIONS (1)
  - Pancreatitis [Recovering/Resolving]

NARRATIVE: CASE EVENT DATE: 20190925
